FAERS Safety Report 7321532-2 (Version None)
Quarter: 2011Q1

REPORT INFORMATION
  Report Type: 
  Country: None (occurrence: None)
  Receive Date: 20110228
  Receipt Date: 20100308
  Transmission Date: 20110831
  Serious: No
  Sender: FDA-Public Use
  Company Number: A0850706A

PATIENT
  Sex: Female

DRUGS (2)
  1. MORPHINE [Suspect]
     Route: 065
  2. VALTREX [Suspect]
     Route: 065

REACTIONS (4)
  - AGITATION [None]
  - TINNITUS [None]
  - MALAISE [None]
  - HEADACHE [None]
